FAERS Safety Report 9863369 (Version 1)
Quarter: 2014Q1

REPORT INFORMATION
  Report Type: Spontaneous
  Country: JP (occurrence: JP)
  Receive Date: 20140203
  Receipt Date: 20140203
  Transmission Date: 20141002
  Serious: No
  Sender: FDA-Public Use
  Company Number: JP-JNJFOC-20140115329

PATIENT
  Sex: 0

DRUGS (2)
  1. DUROTEP MT [Suspect]
     Indication: CANCER PAIN
     Route: 062
  2. OPSO [Concomitant]
     Indication: CANCER PAIN
     Route: 048

REACTIONS (2)
  - Therapy naive [Unknown]
  - Drug prescribing error [Unknown]
